FAERS Safety Report 14326665 (Version 1)
Quarter: 2017Q4

REPORT INFORMATION
  Report Type: Spontaneous
  Country: US (occurrence: US)
  Receive Date: 20171227
  Receipt Date: 20171227
  Transmission Date: 20180321
  Serious: No
  Sender: FDA-Public Use
  Company Number: US-TEVA-2017-US-839253

PATIENT
  Sex: Female

DRUGS (1)
  1. ESTRADIOL. [Suspect]
     Active Substance: ESTRADIOL
     Route: 067

REACTIONS (7)
  - Product use issue [Unknown]
  - Pain [Unknown]
  - Irritability [Unknown]
  - Drug ineffective [Unknown]
  - Product substitution issue [Unknown]
  - Product packaging issue [Unknown]
  - Bladder discomfort [Unknown]
